FAERS Safety Report 9287166 (Version 1)
Quarter: 2013Q2

REPORT INFORMATION
  Report Type: Spontaneous
  Country: BR (occurrence: US)
  Receive Date: 20130513
  Receipt Date: 20130513
  Transmission Date: 20140414
  Serious: No
  Sender: FDA-Public Use
  Company Number: BR-009507513-1305USA006522

PATIENT
  Age: 56 Year
  Sex: Female

DRUGS (1)
  1. JANUVIA [Suspect]
     Indication: TYPE 2 DIABETES MELLITUS
     Dosage: 200 MG, BID
     Dates: start: 201301

REACTIONS (3)
  - Therapeutic response decreased [Recovered/Resolved with Sequelae]
  - No adverse event [Unknown]
  - Inappropriate schedule of drug administration [Unknown]
